FAERS Safety Report 9759539 (Version 1)
Quarter: 2013Q4

REPORT INFORMATION
  Report Type: Spontaneous
  Country: US (occurrence: None)
  Receive Date: 20131212
  Receipt Date: 20131212
  Transmission Date: 20140711
  Serious: Yes (Hospitalization)
  Sender: FDA-Public Use
  Company Number: 2013P1021780

PATIENT
  Age: 62 Year
  Sex: Male

DRUGS (6)
  1. METRONIDAZOLE [Suspect]
     Indication: GASTRITIS
  2. METRONIDAZOLE [Suspect]
     Indication: HELICOBACTER INFECTION
  3. TETRACYCLINE [Suspect]
     Indication: GASTRITIS
  4. TETRACYCLINE [Suspect]
     Indication: HELICOBACTER INFECTION
  5. BISMUTH [Concomitant]
  6. ESOMEPRAZOLE [Concomitant]

REACTIONS (4)
  - Clostridium difficile colitis [None]
  - Hypoalbuminaemia [None]
  - Alanine aminotransferase increased [None]
  - Blood lactic acid increased [None]
